FAERS Safety Report 19264471 (Version 1)
Quarter: 2021Q2

REPORT INFORMATION
  Report Type: Spontaneous
  Country: US (occurrence: US)
  Receive Date: 20210513
  Receipt Date: 20210513
  Transmission Date: 20210717
  Serious: Yes (Other)
  Sender: FDA-Public Use
  Company Number: None

PATIENT
  Age: 82 Year
  Sex: Female

DRUGS (3)
  1. FLUTICASONE. [Concomitant]
     Active Substance: FLUTICASONE
     Dates: start: 20210513
  2. PROLIA [Suspect]
     Active Substance: DENOSUMAB
     Indication: OSTEOPOROSIS
     Route: 058
     Dates: start: 20201116
  3. CLARITIN [Concomitant]
     Active Substance: LORATADINE
     Dates: start: 20210513

REACTIONS (5)
  - Dyspnoea [None]
  - Drug intolerance [None]
  - Multiple allergies [None]
  - Productive cough [None]
  - Viral infection [None]
